FAERS Safety Report 6276844-0 (Version None)
Quarter: 2009Q3

REPORT INFORMATION
  Report Type: 
  Country: None (occurrence: None)
  Receive Date: 20090722
  Receipt Date: 20080917
  Transmission Date: 20100115
  Serious: No
  Sender: FDA-Public Use
  Company Number: US-BRISTOL-MYERS SQUIBB COMPANY-14338354

PATIENT
  Age: 32 Year
  Sex: Male
  Weight: 180 kg

DRUGS (5)
  1. COUMADIN [Suspect]
     Indication: DEEP VEIN THROMBOSIS
     Dosage: BEGUN WITH 5 MG, 2 TABLETS. EXP DATE 02/2010;08/2010
     Dates: start: 20080913
  2. FRAGMIN [Concomitant]
  3. AMBIEN [Concomitant]
  4. LISINOPRIL [Concomitant]
  5. ASPIRIN [Concomitant]

REACTIONS (1)
  - INTERNATIONAL NORMALISED RATIO DECREASED [None]
